FAERS Safety Report 7521849-2 (Version None)
Quarter: 2011Q2

REPORT INFORMATION
  Report Type: 
  Country: None (occurrence: None)
  Receive Date: 20110524
  Receipt Date: 20110516
  Transmission Date: 20111010
  Serious: Yes (Hospitalization, Other)
  Sender: FDA-Public Use
  Company Number: 2010SP057649

PATIENT
  Age: 42 Year
  Sex: Female
  Weight: 65.7716 kg

DRUGS (1)
  1. NUVARING [Suspect]
     Indication: CONTRACEPTION
     Dates: start: 20070101, end: 20081101

REACTIONS (12)
  - QUALITY OF LIFE DECREASED [None]
  - CERVICITIS [None]
  - LEIOMYOMA [None]
  - MAJOR DEPRESSION [None]
  - THROMBOSIS [None]
  - DYSFUNCTIONAL UTERINE BLEEDING [None]
  - ANAEMIA [None]
  - SALPINGITIS [None]
  - MENTAL DISORDER [None]
  - EMOTIONAL DISORDER [None]
  - COGNITIVE DISORDER [None]
  - ADENOMYOSIS [None]
